FAERS Safety Report 14111259 (Version 2)
Quarter: 2017Q4

REPORT INFORMATION
  Report Type: Spontaneous
  Country: AR (occurrence: AR)
  Receive Date: 20171020
  Receipt Date: 20171027
  Transmission Date: 20180321
  Serious: Yes (Hospitalization, Other)
  Sender: FDA-Public Use
  Company Number: AR-AMGEN-ARGSP2017158686

PATIENT
  Age: 57 Year
  Sex: Female

DRUGS (1)
  1. ENBREL [Suspect]
     Active Substance: ETANERCEPT
     Indication: PSORIATIC ARTHROPATHY
     Dosage: 50 MG, TWICE A WEEK
     Route: 065
     Dates: start: 20170901, end: 20171001

REACTIONS (9)
  - Fall [Recovering/Resolving]
  - Coma [Recovering/Resolving]
  - Rash macular [Recovering/Resolving]
  - Pyrexia [Recovering/Resolving]
  - Injury [Recovering/Resolving]
  - Seizure [Recovering/Resolving]
  - Cerebrovascular accident [Recovering/Resolving]
  - Condition aggravated [Unknown]
  - Hypersensitivity [Recovering/Resolving]

NARRATIVE: CASE EVENT DATE: 20171001
